FAERS Safety Report 10342167 (Version 1)
Quarter: 2014Q3

REPORT INFORMATION
  Report Type: Spontaneous
  Country: US (occurrence: US)
  Receive Date: 20140725
  Receipt Date: 20140725
  Transmission Date: 20150326
  Serious: No
  Sender: FDA-Public Use
  Company Number: US-PFIZER INC-2014205767

PATIENT
  Age: 41 Year
  Sex: Male
  Weight: 95.24 kg

DRUGS (3)
  1. LYRICA [Suspect]
     Active Substance: PREGABALIN
     Indication: HYPOAESTHESIA
     Dosage: 75 MG, 2X/DAY
     Route: 048
     Dates: start: 201403
  2. ZONISAMIDE. [Concomitant]
     Active Substance: ZONISAMIDE
     Dosage: 75 MG, 1X/DAY
  3. ETODOLAC. [Concomitant]
     Active Substance: ETODOLAC
     Dosage: 800 MG, 1X/DAY

REACTIONS (1)
  - Blepharitis [Unknown]

NARRATIVE: CASE EVENT DATE: 20140525
